FAERS Safety Report 6544682-7 (Version None)
Quarter: 2010Q1

REPORT INFORMATION
  Report Type: 
  Country: None (occurrence: None)
  Receive Date: 20100121
  Receipt Date: 20100119
  Transmission Date: 20100710
  Serious: Yes (Death)
  Sender: FDA-Public Use
  Company Number: US-ABBOTT-10P-163-0620355-00

PATIENT

DRUGS (1)
  1. HUMIRA [Suspect]
     Indication: CROHN'S DISEASE
     Dosage: -OCT-2009
     Route: 058
     Dates: start: 20091001

REACTIONS (3)
  - DYSPNOEA [None]
  - ORGAN FAILURE [None]
  - UNRESPONSIVE TO STIMULI [None]
